FAERS Safety Report 7832887-4 (Version None)
Quarter: 2011Q4

REPORT INFORMATION
  Report Type: 
  Country: None (occurrence: None)
  Receive Date: 20111019
  Receipt Date: 20111011
  Transmission Date: 20120403
  Serious: Yes (Other)
  Sender: FDA-Public Use
  Company Number: 1074055

PATIENT
  Age: 38 Year
  Sex: Male

DRUGS (2)
  1. PHENYTOIN [Suspect]
     Indication: PRODUCT USED FOR UNKNOWN INDICATION
  2. STELARA [Suspect]
     Indication: PSORIASIS
     Dosage: 45 MG MILLIGRAM(S), , SUBCUTANEOUS
     Route: 058

REACTIONS (6)
  - DRUG INTERACTION [None]
  - TOXICITY TO VARIOUS AGENTS [None]
  - ATAXIA [None]
  - DRUG LEVEL INCREASED [None]
  - EPILEPSY [None]
  - GAMMA-GLUTAMYLTRANSFERASE INCREASED [None]
